FAERS Safety Report 14638676 (Version 1)
Quarter: 2018Q1

REPORT INFORMATION
  Report Type: Spontaneous
  Country: US (occurrence: US)
  Receive Date: 20180314
  Receipt Date: 20180314
  Transmission Date: 20180509
  Serious: Yes (Hospitalization)
  Sender: FDA-Public Use
  Company Number: US-ROCHE-2085062

PATIENT
  Age: 83 Year
  Sex: Female
  Weight: 58.11 kg

DRUGS (2)
  1. INSULIN [Concomitant]
     Active Substance: INSULIN NOS
     Indication: BLOOD GLUCOSE INCREASED
     Route: 065
     Dates: start: 201802
  2. RITUXAN [Suspect]
     Active Substance: RITUXIMAB
     Indication: HAEMOPHILIA
     Route: 042
     Dates: start: 20180212, end: 20180222

REACTIONS (10)
  - Heart rate decreased [Recovered/Resolved]
  - Blood pressure increased [Unknown]
  - Blood glucose increased [Unknown]
  - Blood potassium increased [Unknown]
  - Off label use [Unknown]
  - Urethral haemorrhage [Not Recovered/Not Resolved]
  - Drug ineffective [Unknown]
  - Chills [Recovered/Resolved]
  - Haemoglobin decreased [Unknown]
  - Intentional product use issue [Unknown]

NARRATIVE: CASE EVENT DATE: 20180212
